FAERS Safety Report 11653155 (Version 2)
Quarter: 2015Q4

REPORT INFORMATION
  Report Type: Spontaneous
  Country: US (occurrence: US)
  Receive Date: 20151022
  Receipt Date: 20151111
  Transmission Date: 20160304
  Serious: Yes (Hospitalization)
  Sender: FDA-Public Use
  Company Number: US-UNITED THERAPEUTICS-UNT-2015-012964

PATIENT
  Age: 46 Year
  Sex: Male
  Weight: 124.26 kg

DRUGS (1)
  1. REMODULIN [Suspect]
     Active Substance: TREPROSTINIL
     Indication: PULMONARY HYPERTENSION
     Dosage: 0.100 ?G/KG, CONTINUING
     Route: 041
     Dates: start: 20121001

REACTIONS (5)
  - Pneumonia [Unknown]
  - Gastric infection [Unknown]
  - Aggression [Unknown]
  - Sinusitis [Unknown]
  - Device leakage [Unknown]

NARRATIVE: CASE EVENT DATE: 2015
